FAERS Safety Report 12256743 (Version 3)
Quarter: 2016Q2

REPORT INFORMATION
  Report Type: Spontaneous
  Country: US (occurrence: US)
  Receive Date: 20160412
  Receipt Date: 20160506
  Transmission Date: 20160815
  Serious: No
  Sender: FDA-Public Use
  Company Number: US-PFIZER INC-2016169275

PATIENT
  Age: 84 Year
  Sex: Female

DRUGS (7)
  1. CEPHALEXIN. [Suspect]
     Active Substance: CEPHALEXIN
     Dosage: UNK
  2. CIPROFLOXACIN. [Suspect]
     Active Substance: CIPROFLOXACIN
     Dosage: UNK
  3. SUPRAX [Suspect]
     Active Substance: CEFIXIME
     Dosage: UNK
  4. ZESTRIL [Suspect]
     Active Substance: LISINOPRIL
     Dosage: UNK
  5. CAPOTEN [Suspect]
     Active Substance: CAPTOPRIL
     Dosage: UNK
  6. LIPITOR [Suspect]
     Active Substance: ATORVASTATIN CALCIUM
     Dosage: UNK
  7. CEFIXIME. [Suspect]
     Active Substance: CEFIXIME
     Dosage: UNK

REACTIONS (1)
  - Drug hypersensitivity [Unknown]
